FAERS Safety Report 8881941 (Version 2)
Quarter: 2012Q4

REPORT INFORMATION
  Report Type: 
  Country: TW (occurrence: TW)
  Receive Date: 20121102
  Receipt Date: 20121112
  Transmission Date: 20130627
  Serious: Yes (Hospitalization, Other)
  Sender: FDA-Public Use
  Company Number: TW-RANBAXY-2012RR-61656

PATIENT
  Age: 30 Year
  Sex: Female

DRUGS (4)
  1. VENLAFAXINE [Suspect]
     Dosage: UNK
     Route: 048
  2. LORAZEPAM [Suspect]
     Dosage: UNK
     Route: 048
  3. BUPROPION [Suspect]
     Dosage: UNK
     Route: 048
  4. LORAZEPAM [Suspect]
     Indication: SEROTONIN SYNDROME
     Dosage: UNK
     Route: 042

REACTIONS (10)
  - Central nervous system necrosis [Unknown]
  - Cardiac disorder [Recovered/Resolved]
  - Overdose [Unknown]
  - Myoclonus [Unknown]
  - Respiratory distress [Recovered/Resolved]
  - Serotonin syndrome [Unknown]
  - Suicide attempt [Unknown]
  - Drug withdrawal syndrome [Unknown]
  - Akathisia [Recovering/Resolving]
  - Choreoathetosis [Not Recovered/Not Resolved]
